FAERS Safety Report 6540122-2 (Version None)
Quarter: 2010Q1

REPORT INFORMATION
  Report Type: 
  Country: None (occurrence: None)
  Receive Date: 20100115
  Receipt Date: 20100104
  Transmission Date: 20100710
  Serious: Yes (Other)
  Sender: FDA-Public Use
  Company Number: GB-WATSON-2010-00197

PATIENT
  Sex: Female

DRUGS (9)
  1. GABAPENTIN [Suspect]
     Indication: NEURALGIA
     Dosage: 1.8 G, DAILY
     Route: 064
  2. FLUOXETINE HCL [Suspect]
     Indication: MAJOR DEPRESSION
     Dosage: UNK
     Route: 064
  3. MORPHINE SULFATE INJ [Suspect]
     Indication: MYELITIS TRANSVERSE
     Dosage: 15 MG, PRN
     Route: 064
  4. MORPHINE SULFATE INJ [Suspect]
     Indication: NEURALGIA
  5. TRAMADOL HCL [Suspect]
     Indication: MYELITIS TRANSVERSE
     Dosage: 100 MEQ5ML, Q6H
     Route: 064
  6. TRAMADOL HCL [Suspect]
     Indication: NEURALGIA
  7. AMITRIPTYLINE [Suspect]
     Indication: MYELITIS TRANSVERSE
     Dosage: UNK
     Route: 064
  8. AMITRIPTYLINE [Suspect]
     Indication: NEURALGIA
  9. TRIFLUOPERAZINE [Suspect]
     Indication: MAJOR DEPRESSION
     Dosage: UNK
     Route: 064

REACTIONS (2)
  - APNOEA [None]
  - DRUG WITHDRAWAL SYNDROME [None]
